FAERS Safety Report 8337646 (Version 4)
Quarter: 2016Q2

REPORT INFORMATION
  Report Type: Spontaneous
  Country: FR (occurrence: FR)
  Receive Date: 20120116
  Receipt Date: 20160429
  Transmission Date: 20160815
  Serious: Yes (Hospitalization)
  Sender: FDA-Public Use
  Company Number: FR-ELI_LILLY_AND_COMPANY-FR201111008076

PATIENT
  Age: 49 Year
  Sex: Male

DRUGS (6)
  1. OLANZAPINE. [Suspect]
     Active Substance: OLANZAPINE
     Dosage: 405 MG
     Route: 030
     Dates: start: 20110816, end: 20111122
  2. THERALENE [Concomitant]
     Active Substance: TRIMEPRAZINE
     Dosage: 20 DROPS IF NEEDED
     Dates: start: 20110713
  3. ZYPREXA [Suspect]
     Active Substance: OLANZAPINE
     Dosage: 20 MG, QD
     Dates: start: 20110715, end: 20110727
  4. ZYPREXA [Suspect]
     Active Substance: OLANZAPINE
     Dosage: 30 MG, QD
     Dates: start: 20110727, end: 20110815
  5. RIVOTRIL [Concomitant]
     Active Substance: CLONAZEPAM
     Dosage: UNK
     Dates: start: 20110820
  6. LOXAPAC                            /00401801/ [Concomitant]
     Active Substance: LOXAPINE SUCCINATE
     Dosage: 50 DROPS IF NEEDED
     Dates: start: 20110713

REACTIONS (13)
  - Drug dose omission [Unknown]
  - Dizziness [Recovered/Resolved]
  - Aggression [Recovered/Resolved]
  - Dysarthria [Recovered/Resolved]
  - Product reconstitution issue [Unknown]
  - Sedation [Recovered/Resolved]
  - Accidental overdose [Unknown]
  - Asthenia [Recovered/Resolved]
  - Prescribed overdose [Unknown]
  - Hypotension [Recovered/Resolved]
  - Prescribed overdose [Unknown]
  - Confusional state [Recovered/Resolved]
  - Impatience [Recovered/Resolved]

NARRATIVE: CASE EVENT DATE: 20110727
